FAERS Safety Report 10932977 (Version 2)
Quarter: 2015Q2

REPORT INFORMATION
  Report Type: Spontaneous
  Country: FR (occurrence: FR)
  Receive Date: 20150320
  Receipt Date: 20150417
  Transmission Date: 20150821
  Serious: Yes (Hospitalization, Other)
  Sender: FDA-Public Use
  Company Number: FR-009507513-1503FRA007763

PATIENT
  Age: 27 Year
  Sex: Female

DRUGS (1)
  1. NEXPLANON [Suspect]
     Active Substance: ETONOGESTREL
     Indication: CONTRACEPTION
     Dosage: LEFT ARM
     Route: 058
     Dates: start: 20140530, end: 201503

REACTIONS (2)
  - Device dislocation [Unknown]
  - Device dislocation [Recovered/Resolved]

NARRATIVE: CASE EVENT DATE: 20150302
